FAERS Safety Report 5449058-1 (Version None)
Quarter: 2007Q3

REPORT INFORMATION
  Report Type: 
  Country: None (occurrence: None)
  Receive Date: 20070911
  Receipt Date: 20070829
  Transmission Date: 20080115
  Serious: Yes (Other)
  Sender: FDA-Public Use
  Company Number: AU-ABBOTT-07P-008-0377810-00

PATIENT
  Sex: Female
  Weight: 62.7 kg

DRUGS (3)
  1. HUMIRA [Suspect]
     Indication: CROHN'S DISEASE
     Dosage: PLACEBO
     Route: 058
     Dates: start: 20031215, end: 20040830
  2. METHOTREXATE [Concomitant]
     Indication: CROHN'S DISEASE
     Route: 058
  3. TIBOLONE [Concomitant]
     Indication: HORMONE REPLACEMENT THERAPY
     Route: 048
     Dates: start: 20030701

REACTIONS (2)
  - ADRENAL NEOPLASM [None]
  - PHAEOCHROMOCYTOMA [None]
